FAERS Safety Report 25727620 (Version 1)
Quarter: 2025Q3

REPORT INFORMATION
  Report Type: Spontaneous
  Country: US (occurrence: US)
  Receive Date: 20250826
  Receipt Date: 20250826
  Transmission Date: 20251020
  Serious: Yes (Death, Other)
  Sender: UNITED THERAPEUTICS
  Company Number: US-UNITED THERAPEUTICS-UNT-2025-028578

PATIENT
  Age: 32 Year
  Sex: Female

DRUGS (12)
  1. REMODULIN [Suspect]
     Active Substance: TREPROSTINIL
     Indication: Myeloproliferative neoplasm
  2. REMODULIN [Suspect]
     Active Substance: TREPROSTINIL
     Indication: Pulmonary hypertension
  3. MACITENTAN [Concomitant]
     Active Substance: MACITENTAN
     Indication: Pulmonary hypertension
  4. MACITENTAN [Concomitant]
     Active Substance: MACITENTAN
     Indication: Myeloproliferative neoplasm
  5. TADALAFIL [Concomitant]
     Active Substance: TADALAFIL
     Indication: Myeloproliferative neoplasm
  6. TADALAFIL [Concomitant]
     Active Substance: TADALAFIL
     Indication: Pulmonary hypertension
  7. EPOPROSTENOL [Concomitant]
     Active Substance: EPOPROSTENOL
     Indication: Pulmonary hypertension
  8. EPOPROSTENOL [Concomitant]
     Active Substance: EPOPROSTENOL
     Indication: Myeloproliferative neoplasm
  9. DECITABINE [Concomitant]
     Active Substance: DECITABINE
     Indication: Myeloid leukaemia
  10. DECITABINE [Concomitant]
     Active Substance: DECITABINE
  11. RUXOLITINIB [Concomitant]
     Active Substance: RUXOLITINIB
     Indication: Myeloid leukaemia
  12. RUXOLITINIB [Concomitant]
     Active Substance: RUXOLITINIB

REACTIONS (5)
  - Respiratory failure [Fatal]
  - Pneumonia [Unknown]
  - Pulmonary hypertension [Unknown]
  - Myeloproliferative neoplasm [Unknown]
  - Off label use [Unknown]
